FAERS Safety Report 15812204 (Version 1)
Quarter: 2019Q1

REPORT INFORMATION
  Report Type: Spontaneous
  Country: US (occurrence: US)
  Receive Date: 20190104
  Receipt Date: 20190104
  Transmission Date: 20190417
  Serious: No
  Sender: FDA-Public Use
  Company Number: None

PATIENT

DRUGS (2)
  1. SEVELAMER CARBONATE 800 MG [Suspect]
     Active Substance: SEVELAMER CARBONATE
  2. IBUPROFEN 800 MG [Suspect]
     Active Substance: IBUPROFEN

REACTIONS (1)
  - Product appearance confusion [None]

NARRATIVE: CASE EVENT DATE: 2018
